FAERS Safety Report 6689836-4 (Version None)
Quarter: 2010Q2

REPORT INFORMATION
  Report Type: 
  Country: None (occurrence: None)
  Receive Date: 20100412
  Receipt Date: 20100217
  Transmission Date: 20101027
  Serious: No
  Sender: FDA-Public Use
  Company Number: 1000011909

PATIENT
  Age: 75 Year
  Sex: Male

DRUGS (3)
  1. BYSTOLIC [Suspect]
     Indication: HEART RATE IRREGULAR
     Dosage: 5 MG (5 MG, 1 IN 1 D), ORAL
     Route: 048
     Dates: start: 20080801
  2. BYSTOLIC [Suspect]
     Indication: HYPERTENSION
     Dosage: 5 MG (5 MG, 1 IN 1 D), ORAL
     Route: 048
     Dates: start: 20080801
  3. ASPIRIN [Concomitant]

REACTIONS (9)
  - BURNING SENSATION [None]
  - CHEST DISCOMFORT [None]
  - CHROMATURIA [None]
  - DIZZINESS [None]
  - FATIGUE [None]
  - PARAESTHESIA [None]
  - RASH [None]
  - SEXUAL DYSFUNCTION [None]
  - URINE ODOUR ABNORMAL [None]
